FAERS Safety Report 4631507-X (Version None)
Quarter: 2005Q2

REPORT INFORMATION
  Report Type: 
  Country: None (occurrence: None)
  Receive Date: 20050407
  Receipt Date: 20050407
  Transmission Date: 20051028
  Serious: No
  Sender: FDA-Public Use
  Company Number: None

PATIENT

DRUGS (2)
  1. XYLOCAINE [Suspect]
  2. XYLOCAINE [Suspect]

REACTIONS (1)
  - MEDICATION ERROR [None]
